FAERS Safety Report 20629265 (Version 1)
Quarter: 2022Q1

REPORT INFORMATION
  Report Type: Spontaneous
  Country: BR (occurrence: BR)
  Receive Date: 20220323
  Receipt Date: 20220323
  Transmission Date: 20220423
  Serious: Yes (Disabling, Other)
  Sender: FDA-Public Use
  Company Number: BR-PFIZER INC-202200374567

PATIENT
  Age: 55 Year
  Sex: Male

DRUGS (3)
  1. LORAZEPAM [Suspect]
     Active Substance: LORAZEPAM
     Dosage: 4 MG, 1X/DAY
  2. LACTULOSE [Concomitant]
     Active Substance: LACTULOSE
     Dosage: UNK
  3. GLYCERIN [Concomitant]
     Active Substance: GLYCERIN
     Dosage: UNK

REACTIONS (14)
  - Polyneuropathy [Unknown]
  - Diabetes mellitus [Unknown]
  - Tropical spastic paresis [Unknown]
  - Human T-cell lymphotropic virus type I infection [Unknown]
  - Dysstasia [Unknown]
  - Pain [Unknown]
  - Loss of personal independence in daily activities [Unknown]
  - Feeling of despair [Unknown]
  - Neurogenic bowel [Unknown]
  - Muscular weakness [Unknown]
  - Nervous system disorder [Unknown]
  - Anxiety [Unknown]
  - Feeling abnormal [Unknown]
  - Constipation [Unknown]
